FAERS Safety Report 7202855-4 (Version None)
Quarter: 2010Q4

REPORT INFORMATION
  Report Type: 
  Country: None (occurrence: None)
  Receive Date: 20101229
  Receipt Date: 20101218
  Transmission Date: 20110411
  Serious: Yes (Other)
  Sender: FDA-Public Use
  Company Number: US-BAXTER-2010BH030920

PATIENT
  Sex: Female

DRUGS (5)
  1. MORPHINE SULFATE [Suspect]
     Indication: ANAESTHESIA
     Route: 037
  2. PHENYLEPHRINE HYDROCHLORIDE [Suspect]
     Indication: HYPOTENSION
     Route: 041
  3. FENTANYL CITRATE [Suspect]
     Indication: ANAESTHESIA
     Route: 037
  4. BUPIVACAINE, UNSPECIFIED [Suspect]
     Indication: ANAESTHESIA
     Route: 037
  5. SODIUM CITRATE [Concomitant]
     Indication: PROPHYLAXIS
     Route: 048

REACTIONS (2)
  - DRUG EXPOSURE DURING PREGNANCY [None]
  - VENTRICULAR EXTRASYSTOLES [None]
